FAERS Safety Report 6813611-0 (Version None)
Quarter: 2010Q3

REPORT INFORMATION
  Report Type: 
  Country: None (occurrence: None)
  Receive Date: 20100701
  Receipt Date: 20100618
  Transmission Date: 20110219
  Serious: Yes (Other)
  Sender: FDA-Public Use
  Company Number: BR-GENENTECH-301487

PATIENT
  Sex: Female
  Weight: 86 kg

DRUGS (2)
  1. RITUXIMAB [Suspect]
     Indication: RHEUMATOID ARTHRITIS
     Dosage: UNK
     Route: 042
     Dates: start: 20100123, end: 20100208
  2. RITUXIMAB [Suspect]
     Route: 042

REACTIONS (1)
  - HYPOTHERMIA [None]
